FAERS Safety Report 8798998 (Version 2)
Quarter: 2012Q4

REPORT INFORMATION
  Report Type: Report from Study
  Country: BE (occurrence: DE)
  Receive Date: 20120920
  Receipt Date: 20121011
  Transmission Date: 20130627
  Serious: Yes (Hospitalization)
  Sender: FDA-Public Use
  Company Number: DE-BRISTOL-MYERS SQUIBB COMPANY-16970188

PATIENT
  Age: 66 Year
  Sex: Female

DRUGS (3)
  1. IPILIMUMAB [Suspect]
     Indication: MALIGNANT MELANOMA
     Route: 042
     Dates: start: 20120525, end: 20120727
  2. L-THYROXINE [Concomitant]
     Dates: start: 20120816
  3. NOVALGIN [Concomitant]
     Dosage: 25-75-75
     Dates: start: 20120728

REACTIONS (1)
  - Pyrexia [Recovered/Resolved]
